FAERS Safety Report 14147121 (Version 1)
Quarter: 2017Q4

REPORT INFORMATION
  Report Type: Report from Study
  Country: None (occurrence: AU)
  Receive Date: 20171031
  Receipt Date: 20171031
  Transmission Date: 20180321
  Serious: Yes (Hospitalization, Other)
  Sender: FDA-Public Use
  Company Number: AU-ABBVIE-17P-008-2002817-00

PATIENT
  Sex: Male

DRUGS (1)
  1. VENETOCLAX. [Suspect]
     Active Substance: VENETOCLAX
     Indication: CHRONIC LYMPHOCYTIC LEUKAEMIA
     Route: 048
     Dates: start: 20161024, end: 20170609

REACTIONS (7)
  - Richter^s syndrome [Unknown]
  - Jaundice [Unknown]
  - B-cell lymphoma [Unknown]
  - Hepatic lesion [Unknown]
  - Biliary dilatation [Unknown]
  - Fibrosis [Unknown]
  - Hepatic neoplasm [Unknown]
